FAERS Safety Report 17741978 (Version 1)
Quarter: 2020Q2

REPORT INFORMATION
  Report Type: Spontaneous
  Country: US (occurrence: US)
  Receive Date: 20200504
  Receipt Date: 20200504
  Transmission Date: 20200714
  Serious: No
  Sender: FDA-Public Use
  Company Number: US-SPECGX-T201908950

PATIENT
  Age: 63 Year
  Sex: Male

DRUGS (3)
  1. ABILIFY MAINTENA [Suspect]
     Active Substance: ARIPIPRAZOLE
     Indication: SCHIZOAFFECTIVE DISORDER BIPOLAR TYPE
     Dosage: 400 MILLIGRAM, MONTHLY
     Route: 065
  2. RESTORIL [Suspect]
     Active Substance: TEMAZEPAM
     Indication: INSOMNIA
     Dosage: 30 MILLIGRAM
     Route: 065
     Dates: start: 20191114, end: 20191115
  3. RESTORIL [Suspect]
     Active Substance: TEMAZEPAM
     Dosage: 15 MILLIGRAM
     Route: 065
     Dates: start: 20191115

REACTIONS (3)
  - Therapeutic product effect increased [Unknown]
  - Balance disorder [Unknown]
  - Paranoia [Unknown]

NARRATIVE: CASE EVENT DATE: 20191114
